FAERS Safety Report 8727462 (Version 3)
Quarter: 2012Q4

REPORT INFORMATION
  Report Type: 
  Country: US (occurrence: US)
  Receive Date: 20120816
  Receipt Date: 20121001
  Transmission Date: 20130627
  Serious: Yes (Hospitalization)
  Sender: FDA-Public Use
  Company Number: US-JNJFOC-20120804468

PATIENT
  Age: 52 None
  Sex: Female
  Weight: 61.69 kg

DRUGS (3)
  1. NUCYNTA [Suspect]
     Indication: PROCEDURAL PAIN
     Dosage: 1 tablets as needed every 4 to 6 hours
     Route: 048
     Dates: start: 20120430, end: 20120522
  2. LEVETIRACETAM [Concomitant]
     Indication: CONVULSION
     Dosage: twice a day
     Route: 048
     Dates: start: 200812
  3. AN UNKNOWN MEDICATION [Concomitant]
     Indication: PAIN IN EXTREMITY
     Dosage: one tablet thrice a day as necessary
     Route: 048
     Dates: start: 201202

REACTIONS (5)
  - Hypotension [Not Recovered/Not Resolved]
  - Syncope [Recovered/Resolved]
  - Shock [Not Recovered/Not Resolved]
  - Asthenia [Recovered/Resolved]
  - Feeling abnormal [Not Recovered/Not Resolved]
